FAERS Safety Report 4720869-0 (Version None)
Quarter: 2005Q3

REPORT INFORMATION
  Report Type: 
  Country: None (occurrence: None)
  Receive Date: 20050720
  Receipt Date: 20050707
  Transmission Date: 20060218
  Serious: Yes (Other)
  Sender: FDA-Public Use
  Company Number: 2005099741

PATIENT
  Age: 7 Year
  Sex: Male
  Weight: 21.4 kg

DRUGS (3)
  1. GENOTROPIN [Suspect]
     Indication: GROWTH RETARDATION
     Dosage: 1 MG (1 MG,DAILY),SUBCUTANEOUS
     Route: 058
     Dates: start: 20050101
  2. GENOTROPIN [Suspect]
     Indication: HYPOPITUITARISM
     Dosage: 1 MG (1 MG,DAILY),SUBCUTANEOUS
     Route: 058
     Dates: start: 20050101
  3. LEVOXYL [Concomitant]

REACTIONS (2)
  - CATARACT [None]
  - EYE PAIN [None]
